FAERS Safety Report 8346532 (Version 7)
Quarter: 2014Q1

REPORT INFORMATION
  Report Type: Spontaneous
  Country: US (occurrence: US)
  Receive Date: 20120120
  Receipt Date: 20140325
  Transmission Date: 20141002
  Serious: Yes (Other)
  Sender: FDA-Public Use
  Company Number: US-PFIZER INC-2012014387

PATIENT
  Age: 68 Year
  Sex: Male
  Weight: 98.87 kg

DRUGS (6)
  1. LYRICA [Suspect]
     Indication: NERVE INJURY
     Dosage: 150 MG, 3X/DAY
     Route: 048
     Dates: start: 2005
  2. LYRICA [Suspect]
     Indication: PAIN
     Dosage: 150 MG, 2X/DAY
     Route: 048
     Dates: start: 201306
  3. LYRICA [Suspect]
     Dosage: UNK
  4. HYDROCHLOROTHIAZID [Concomitant]
     Indication: HYPERTENSION
     Dosage: 25 MG, DAILY
  5. LISINOPRIL [Concomitant]
     Indication: HYPERTENSION
     Dosage: 40 MG DAILY
  6. PERCOCET [Concomitant]
     Indication: PROCEDURAL PAIN
     Dosage: [OXYCODONE 7.5MG/ACETAMINOPHEN 225MG] 3-4 TIMES A DAY

REACTIONS (10)
  - Lung disorder [Unknown]
  - Blood pressure increased [Unknown]
  - Speech disorder [Unknown]
  - Stress [Unknown]
  - Feeling abnormal [Unknown]
  - Malaise [Unknown]
  - Pain [Unknown]
  - Neuralgia [Unknown]
  - Impaired work ability [Unknown]
  - Drug withdrawal syndrome [Unknown]
